FAERS Safety Report 4584691-0 (Version None)
Quarter: 2005Q1

REPORT INFORMATION
  Report Type: 
  Country: None (occurrence: None)
  Receive Date: 20050211
  Receipt Date: 20050204
  Transmission Date: 20050727
  Serious: Yes (Other)
  Sender: FDA-Public Use
  Company Number: 212256

PATIENT
  Age: 55 Year
  Sex: Male

DRUGS (1)
  1. ACTIVASE [Suspect]
     Indication: INTRAVENTRICULAR HAEMORRHAGE
     Dosage: INTRATHECAL
     Route: 037
     Dates: start: 20040905, end: 20040908

REACTIONS (3)
  - BLOOD PRESSURE INCREASED [None]
  - CONVULSION [None]
  - EYE MOVEMENT DISORDER [None]
